FAERS Safety Report 19024515 (Version 1)
Quarter: 2021Q1

REPORT INFORMATION
  Report Type: Report from Study
  Country: JP (occurrence: JP)
  Receive Date: 20210317
  Receipt Date: 20210317
  Transmission Date: 20210420
  Serious: Yes (Hospitalization, Other)
  Sender: FDA-Public Use
  Company Number: JP-CELLTRION INC.-2020JP026468

PATIENT

DRUGS (5)
  1. CT?P13 [Suspect]
     Active Substance: INFLIXIMAB-DYYB
     Indication: CROHN^S DISEASE
     Dosage: 290 MILLIGRAM (PATIENT WEIGHT OF 57.6 KG)
     Route: 041
     Dates: start: 20181105, end: 20181105
  2. CT?P13 [Suspect]
     Active Substance: INFLIXIMAB-DYYB
     Dosage: 300 MILLIGRAM (PATIENT WEIGHT OF 60.1 KG)
     Route: 041
     Dates: start: 20190218, end: 20190218
  3. CT?P13 [Suspect]
     Active Substance: INFLIXIMAB-DYYB
     Dosage: 300 MILLIGRAM (PATIENT WEIGHT OF 59.8 KG)
     Route: 041
     Dates: start: 20190415, end: 20190415
  4. CT?P13 [Suspect]
     Active Substance: INFLIXIMAB-DYYB
     Dosage: 295 MILLIGRAM (PATIENT WEIGHT OF 59.4 KG)
     Route: 041
     Dates: start: 20181224, end: 20181224
  5. CT?P13 [Suspect]
     Active Substance: INFLIXIMAB-DYYB
     Dosage: 320 MILLIGRAM (PATIENT WEIGHT OF 63.8 KG)
     Route: 041
     Dates: start: 20191007, end: 20191007

REACTIONS (6)
  - Overdose [Unknown]
  - Underdose [Unknown]
  - Proctalgia [Recovered/Resolved]
  - Uterine myoma expulsion [Recovered/Resolved]
  - Off label use [Unknown]
  - Product use issue [Unknown]

NARRATIVE: CASE EVENT DATE: 20190722
